FAERS Safety Report 11413073 (Version 1)
Quarter: 2015Q3

REPORT INFORMATION
  Report Type: Spontaneous
  Country: FR (occurrence: FR)
  Receive Date: 20150824
  Receipt Date: 20150824
  Transmission Date: 20151125
  Serious: Yes (Hospitalization, Other)
  Sender: FDA-Public Use
  Company Number: FR-ELI_LILLY_AND_COMPANY-FR201508003340

PATIENT
  Age: 80 Year
  Sex: Male

DRUGS (10)
  1. COAPROVEL [Concomitant]
     Active Substance: HYDROCHLOROTHIAZIDE\IRBESARTAN
     Dosage: 1 DF, EACH MORNING
     Route: 065
  2. XATRAL [Concomitant]
     Active Substance: ALFUZOSIN
     Dosage: 10 MG, EACH EVENING
     Route: 065
  3. BROMAZEPAM [Concomitant]
     Active Substance: BROMAZEPAM
     Dosage: 0.25 DF, QD
     Route: 065
  4. BROMAZEPAM [Concomitant]
     Active Substance: BROMAZEPAM
     Dosage: 0.5 DF, EACH EVENING
     Route: 065
  5. CELIPROLOL [Concomitant]
     Active Substance: CELIPROLOL
     Dosage: 1 DF, EACH MORNING
     Route: 065
  6. CYMBALTA [Suspect]
     Active Substance: DULOXETINE HYDROCHLORIDE
     Indication: PRODUCT USED FOR UNKNOWN INDICATION
     Dosage: UNK, UNKNOWN
     Route: 048
     Dates: end: 201506
  7. KARDEGIC [Interacting]
     Active Substance: ASPIRIN LYSINE
     Indication: HYPERTENSION
     Dosage: 75 MG, QD
     Route: 048
     Dates: end: 20150608
  8. CALCIDOSE                          /00944201/ [Concomitant]
     Dosage: 1 DF, BID
     Route: 065
  9. TRAMADOL. [Concomitant]
     Active Substance: TRAMADOL
     Dosage: 50 MG, UNKNOWN
     Route: 065
  10. MOPRAL                             /00661201/ [Concomitant]
     Active Substance: OMEPRAZOLE SODIUM
     Dosage: 20 MG, UNKNOWN
     Route: 065

REACTIONS (13)
  - Blood pressure increased [Unknown]
  - Fall [Unknown]
  - Speech disorder [Unknown]
  - Hyponatraemia [Unknown]
  - Headache [Unknown]
  - Drug interaction [Unknown]
  - Leukocytosis [Unknown]
  - Cerebral haematoma [Unknown]
  - Blindness unilateral [Unknown]
  - Hemianopia homonymous [Unknown]
  - QRS axis abnormal [Unknown]
  - Amnesia [Unknown]
  - Contusion [Unknown]

NARRATIVE: CASE EVENT DATE: 20150531
